FAERS Safety Report 8216182-X (Version None)
Quarter: 2012Q1

REPORT INFORMATION
  Report Type: 
  Country: None (occurrence: None)
  Receive Date: 20120316
  Receipt Date: 20120307
  Transmission Date: 20120608
  Serious: Yes (Other)
  Sender: FDA-Public Use
  Company Number: US-GLAXOSMITHKLINE-A0965891A

PATIENT
  Age: 60 Year
  Sex: Female

DRUGS (7)
  1. ALBUTEROL [Concomitant]
  2. FLOVENT [Suspect]
     Indication: ASTHMA
     Dosage: 1PUFF TWICE PER DAY
     Route: 055
     Dates: start: 20120131
  3. ASPIRIN [Concomitant]
  4. CRESTOR [Concomitant]
  5. RAMIPRIL [Concomitant]
  6. ADVAIR DISKUS 100/50 [Suspect]
     Indication: ASTHMA
     Dosage: 2PUFF TWICE PER DAY
     Route: 055
     Dates: start: 20100501, end: 20110501
  7. SEREVENT [Suspect]
     Indication: ASTHMA
     Route: 055
     Dates: start: 19970101

REACTIONS (6)
  - HEADACHE [None]
  - MYOCARDIAL INFARCTION [None]
  - NERVOUSNESS [None]
  - HEART RATE INCREASED [None]
  - PALPITATIONS [None]
  - SENSATION OF BLOOD FLOW [None]
